FAERS Safety Report 4673330-6 (Version None)
Quarter: 2005Q2

REPORT INFORMATION
  Report Type: 
  Country: None (occurrence: None)
  Receive Date: 20050525
  Receipt Date: 20050520
  Transmission Date: 20051028
  Serious: Yes (Disabling)
  Sender: FDA-Public Use
  Company Number: US-MERCK-0505USA02475

PATIENT
  Age: 68 Year
  Sex: Female

DRUGS (4)
  1. FOSAMAX [Suspect]
     Indication: OSTEOPOROSIS
     Route: 048
     Dates: start: 20040801, end: 20040101
  2. HYDRODIURIL [Concomitant]
     Route: 048
  3. PREMARIN [Concomitant]
     Route: 065
  4. PROVERA [Concomitant]
     Route: 065

REACTIONS (3)
  - CATARACT [None]
  - HYPERSENSITIVITY [None]
  - JOINT STIFFNESS [None]
